FAERS Safety Report 5117722-X (Version None)
Quarter: 2006Q3

REPORT INFORMATION
  Report Type: 
  Country: None (occurrence: None)
  Receive Date: 20060926
  Receipt Date: 20060905
  Transmission Date: 20061208
  Serious: Yes (Death)
  Sender: FDA-Public Use
  Company Number: GB200609000585

PATIENT
  Age: 66 Year
  Sex: Male

DRUGS (2)
  1. ZYPREXA [Suspect]
     Indication: BIPOLAR DISORDER
     Dosage: 20 MG,
  2. DEPAKOTE [Concomitant]

REACTIONS (3)
  - CARDIAC FAILURE [None]
  - ILL-DEFINED DISORDER [None]
  - MALAISE [None]
